FAERS Safety Report 16410927 (Version 1)
Quarter: 2019Q2

REPORT INFORMATION
  Report Type: Spontaneous
  Country: IT (occurrence: IT)
  Receive Date: 20190610
  Receipt Date: 20190610
  Transmission Date: 20190711
  Serious: Yes (Hospitalization, Other)
  Sender: FDA-Public Use
  Company Number: IT-MYLANLABS-2019M1054075

PATIENT
  Age: 87 Year
  Sex: Female

DRUGS (3)
  1. CARVEDIOL [Concomitant]
     Active Substance: CARVEDILOL
  2. FONDAPARINUX [Suspect]
     Active Substance: FONDAPARINUX
     Indication: DEEP VEIN THROMBOSIS
     Dosage: 5 MILLIGRAM, QD
     Route: 065
     Dates: start: 20190101, end: 20190423
  3. RAMIPRIL. [Concomitant]
     Active Substance: RAMIPRIL

REACTIONS (2)
  - Incorrect product administration duration [Unknown]
  - Rectal haemorrhage [Not Recovered/Not Resolved]

NARRATIVE: CASE EVENT DATE: 2019
